FAERS Safety Report 12078076 (Version 2)
Quarter: 2016Q1

REPORT INFORMATION
  Report Type: Spontaneous
  Country: US (occurrence: US)
  Receive Date: 20160215
  Receipt Date: 20160223
  Transmission Date: 20160526
  Serious: Yes (Hospitalization, Other)
  Sender: FDA-Public Use
  Company Number: US-PFIZER INC-2016079851

PATIENT
  Age: 60 Year
  Sex: Male

DRUGS (5)
  1. VIAGRA [Suspect]
     Active Substance: SILDENAFIL CITRATE
     Dosage: 100 MG, UNK
  2. BIAXIN [Concomitant]
     Active Substance: CLARITHROMYCIN
     Dosage: 500 MG, UNK
     Dates: start: 20030406
  3. GUAIFENESIN DM [Concomitant]
     Active Substance: DEXTROMETHORPHAN\DEXTROMETHORPHAN HYDROBROMIDE\GUAIFENESIN
     Dosage: UNK
     Dates: start: 20030911
  4. CEPHALEXIN. [Concomitant]
     Active Substance: CEPHALEXIN
     Dosage: 500 MG, UNK
     Dates: start: 20021210
  5. AVELOX [Concomitant]
     Active Substance: MOXIFLOXACIN HYDROCHLORIDE
     Dosage: 400 MG, UNK
     Dates: start: 20030911

REACTIONS (18)
  - Coronary artery stenosis [Unknown]
  - Delirium [Recovering/Resolving]
  - Ventricular extrasystoles [Unknown]
  - Acute myocardial infarction [Unknown]
  - Ventricular arrhythmia [Unknown]
  - Ventricular tachycardia [Unknown]
  - Bundle branch block right [Unknown]
  - Leukocytosis [Recovered/Resolved]
  - Supraventricular tachycardia [Unknown]
  - Oedema peripheral [Unknown]
  - Face oedema [Unknown]
  - Cardiogenic shock [Unknown]
  - Arteriosclerosis coronary artery [Unknown]
  - Chest X-ray abnormal [Unknown]
  - Ventricular extrasystoles [Unknown]
  - Haemothorax [Unknown]
  - Pleural effusion [Unknown]
  - Atelectasis [Unknown]

NARRATIVE: CASE EVENT DATE: 20140904
